FAERS Safety Report 4417381-5 (Version None)
Quarter: 2004Q3

REPORT INFORMATION
  Report Type: 
  Country: None (occurrence: None)
  Receive Date: 20040702
  Receipt Date: 20030530
  Transmission Date: 20050211
  Serious: Yes (Life-Threatening, Hospitalization, Other)
  Sender: FDA-Public Use
  Company Number: 2003019333

PATIENT
  Age: 47 Year
  Sex: Female

DRUGS (10)
  1. ACCUPRIL [Suspect]
     Indication: HYPERTENSION
     Dosage: 10 MG (DAILY), ORAL
     Route: 048
  2. NAPROXEN [Suspect]
     Indication: ILL-DEFINED DISORDER
     Dosage: ORAL
     Route: 048
  3. SERTRALINE HCL [Concomitant]
  4. LEVOTHYROXINE SODIUM [Concomitant]
  5. PROVELLA-14 (MEDROXYPROGESTERONE ACETATE, ESTROGENS CONJUGATED) [Concomitant]
  6. BUPROPION HYDROCHLORIDE [Concomitant]
  7. LITHIUM CARBONATE [Concomitant]
  8. GUANFACINE HYDROCHLORIDE (GUANFACINE HYDROCHLORIDE) [Concomitant]
  9. CLONIDINE [Concomitant]
  10. VERAPAMIL [Concomitant]

REACTIONS (2)
  - ANGIONEUROTIC OEDEMA [None]
  - HYPERTENSION [None]
